FAERS Safety Report 8044588-0 (Version None)
Quarter: 2012Q1

REPORT INFORMATION
  Report Type: 
  Country: None (occurrence: None)
  Receive Date: 20120113
  Receipt Date: 20120113
  Transmission Date: 20120608
  Serious: Yes (Life-Threatening, Hospitalization, Disabling)
  Sender: FDA-Public Use
  Company Number: None

PATIENT
  Sex: Male
  Weight: 88.6 kg

DRUGS (14)
  1. METOPROLOL [Concomitant]
     Route: 048
  2. M.V.I. [Concomitant]
  3. LYRICA [Concomitant]
     Route: 048
  4. KRYSTEXXA [Suspect]
     Indication: GOUT
     Dosage: 8 MG
     Route: 041
     Dates: start: 20111102, end: 20120111
  5. NIASPAN [Concomitant]
     Route: 048
  6. NABUMETONE [Concomitant]
     Route: 048
  7. ALLOPURINOL [Concomitant]
     Route: 048
  8. FISH OIL [Concomitant]
     Route: 048
  9. PROBENECID [Concomitant]
     Route: 048
  10. OMEPRAZOLE [Concomitant]
     Route: 048
  11. PERCOCET [Concomitant]
     Route: 048
  12. KOMBIGLYZE 2.5 MG/1000 MG [Concomitant]
  13. LISINOPRIL [Concomitant]
     Route: 048
  14. COLCRYS [Concomitant]
     Route: 048

REACTIONS (9)
  - GOUT [None]
  - FEELING HOT [None]
  - JOINT STIFFNESS [None]
  - HEADACHE [None]
  - MUSCULOSKELETAL STIFFNESS [None]
  - CONDITION AGGRAVATED [None]
  - EYE PAIN [None]
  - BLOOD PRESSURE INCREASED [None]
  - CONFUSIONAL STATE [None]
